FAERS Safety Report 24555281 (Version 1)
Quarter: 2024Q4

REPORT INFORMATION
  Report Type: Spontaneous
  Country: CN (occurrence: CN)
  Receive Date: 20241028
  Receipt Date: 20241028
  Transmission Date: 20250115
  Serious: Yes (Hospitalization)
  Sender: ROCHE
  Company Number: CN-ROCHE-10000115001

PATIENT
  Age: 38 Year
  Sex: Female
  Weight: 40 kg

DRUGS (4)
  1. MYCOPHENOLATE MOFETIL [Suspect]
     Active Substance: MYCOPHENOLATE MOFETIL
     Indication: Acute lymphocytic leukaemia
     Route: 048
     Dates: start: 20241006, end: 20241008
  2. CYCLOSPORINE [Suspect]
     Active Substance: CYCLOSPORINE
     Indication: Acute lymphocytic leukaemia
     Route: 050
     Dates: start: 20241004, end: 20241006
  3. CYCLOSPORINE [Suspect]
     Active Substance: CYCLOSPORINE
     Route: 050
     Dates: start: 20241006, end: 20241008
  4. CYCLOSPORINE [Suspect]
     Active Substance: CYCLOSPORINE
     Route: 050
     Dates: start: 20241008, end: 20241014

REACTIONS (2)
  - Hepatic enzyme increased [Recovering/Resolving]
  - Off label use [Unknown]

NARRATIVE: CASE EVENT DATE: 20241008
